FAERS Safety Report 7649540-2 (Version None)
Quarter: 2011Q3

REPORT INFORMATION
  Report Type: 
  Country: None (occurrence: None)
  Receive Date: 20110802
  Receipt Date: 20110722
  Transmission Date: 20111222
  Serious: Yes (Hospitalization)
  Sender: FDA-Public Use
  Company Number: JP-NAPPMUNDI-MAG-2011-0001577

PATIENT
  Sex: Male

DRUGS (13)
  1. ROHYPNOL [Concomitant]
     Route: 048
  2. ZOMETA [Concomitant]
     Indication: CANCER PAIN
     Dosage: UNK
     Dates: start: 20110111, end: 20110309
  3. RISPERDAL [Concomitant]
     Dosage: UNK
     Route: 048
     Dates: start: 20110123
  4. CLONAZEPAM [Concomitant]
     Indication: CANCER PAIN
     Route: 048
  5. PAXIL [Concomitant]
     Route: 048
  6. XYLOCAINE [Concomitant]
     Indication: CANCER PAIN
     Dosage: UNK
     Dates: start: 20110105, end: 20110120
  7. OXYCODONE HCL [Suspect]
     Indication: CANCER PAIN
     Dosage: 5 MG, DAILY
     Route: 048
     Dates: start: 20110115, end: 20110322
  8. DIAZEPAM [Concomitant]
     Route: 048
  9. TRYPTANOL                          /00002202/ [Concomitant]
     Route: 048
  10. MAGNESIUM SULFATE [Concomitant]
     Route: 048
  11. OXYCODONE HCL [Suspect]
     Indication: CANCER PAIN
     Dosage: 40 MG, DAILY
     Route: 048
     Dates: start: 20110115, end: 20110127
  12. LYRICA [Concomitant]
     Indication: CANCER PAIN
     Route: 048
  13. OXYCODONE HCL [Suspect]
     Dosage: 50 MG, DAILY
     Route: 048
     Dates: start: 20110127

REACTIONS (2)
  - PNEUMONIA [None]
  - SEDATION [None]
